FAERS Safety Report 12469605 (Version 1)
Quarter: 2016Q2

REPORT INFORMATION
  Report Type: Spontaneous
  Country: US (occurrence: US)
  Receive Date: 20160615
  Receipt Date: 20160615
  Transmission Date: 20160815
  Serious: Yes (Hospitalization)
  Sender: FDA-Public Use
  Company Number: US-ABBVIE-16P-163-1653366-00

PATIENT
  Sex: Female

DRUGS (2)
  1. CEFDINIR. [Suspect]
     Active Substance: CEFDINIR
     Indication: SINUSITIS
     Route: 065
     Dates: start: 20160424
  2. PREMARIN [Suspect]
     Active Substance: ESTROGENS, CONJUGATED
     Indication: PRODUCT USED FOR UNKNOWN INDICATION
     Route: 065

REACTIONS (7)
  - Diarrhoea [Unknown]
  - Heart rate irregular [Unknown]
  - Muscle spasms [Unknown]
  - Anxiety [Unknown]
  - Dyspnoea [Unknown]
  - Atrial fibrillation [Unknown]
  - Chest discomfort [Unknown]
